FAERS Safety Report 5858449-6 (Version None)
Quarter: 2008Q3

REPORT INFORMATION
  Report Type: 
  Country: None (occurrence: None)
  Receive Date: 20080826
  Receipt Date: 20080818
  Transmission Date: 20090109
  Serious: Yes (Other)
  Sender: FDA-Public Use
  Company Number: TH-PFIZER INC-2008052957

PATIENT
  Age: 64 Year
  Sex: Female

DRUGS (3)
  1. CADUET [Suspect]
     Indication: HYPERTENSION
     Dosage: TEXT:5/10MG
     Route: 048
  2. CADUET [Suspect]
     Indication: HYPERCHOLESTEROLAEMIA
  3. CADUET [Suspect]
     Indication: HYPERTRIGLYCERIDAEMIA

REACTIONS (2)
  - BLOOD CREATINE PHOSPHOKINASE INCREASED [None]
  - BLOOD CREATININE INCREASED [None]
